FAERS Safety Report 16827623 (Version 15)
Quarter: 2023Q4

REPORT INFORMATION
  Report Type: Spontaneous
  Country: US (occurrence: US)
  Receive Date: 20190919
  Receipt Date: 20231120
  Transmission Date: 20240109
  Serious: Yes (Other)
  Sender: FDA-Public Use
  Company Number: US-PFIZER INC-2019399830

PATIENT
  Age: 65 Year
  Sex: Female
  Weight: 80 kg

DRUGS (7)
  1. XELJANZ XR [Suspect]
     Active Substance: TOFACITINIB CITRATE
     Indication: Psoriatic arthropathy
     Dosage: 11 MG, 1X/DAY
     Route: 048
     Dates: start: 201811
  2. XELJANZ XR [Suspect]
     Active Substance: TOFACITINIB CITRATE
     Indication: Arthritis
     Dosage: 11 MG, ALTERNATE DAY (EVERY OTHER DAY)
     Route: 048
     Dates: end: 20190910
  3. XELJANZ XR [Suspect]
     Active Substance: TOFACITINIB CITRATE
     Indication: Osteoarthritis
     Dosage: 11 MG, 1X/DAY
     Route: 048
     Dates: start: 20190911
  4. XELJANZ XR [Suspect]
     Active Substance: TOFACITINIB CITRATE
     Dosage: 11 MG, ALTERNATE DAY (EVERY OTHER DAY)
  5. HUMIRA [Concomitant]
     Active Substance: ADALIMUMAB
     Indication: Arthritis
     Dosage: 40 MG, EVERY OTHER WEEK
     Route: 058
     Dates: start: 2016
  6. HUMIRA [Concomitant]
     Active Substance: ADALIMUMAB
     Indication: Psoriatic arthropathy
  7. HUMIRA [Concomitant]
     Active Substance: ADALIMUMAB
     Indication: Osteoarthritis

REACTIONS (12)
  - Arthropathy [Not Recovered/Not Resolved]
  - Knee arthroplasty [Not Recovered/Not Resolved]
  - Arthralgia [Unknown]
  - Foot operation [Unknown]
  - Product dose omission issue [Unknown]
  - Intentional product misuse [Unknown]
  - Condition aggravated [Unknown]
  - Feeling abnormal [Unknown]
  - Pain [Unknown]
  - COVID-19 [Unknown]
  - Illness [Unknown]
  - Speech sound disorder [Unknown]

NARRATIVE: CASE EVENT DATE: 20190801
